FAERS Safety Report 11492817 (Version 1)
Quarter: 2015Q3

REPORT INFORMATION
  Report Type: Spontaneous
  Country: CN (occurrence: CN)
  Receive Date: 20150911
  Receipt Date: 20150911
  Transmission Date: 20151125
  Serious: Yes (Hospitalization, Disabling, Other)
  Sender: FDA-Public Use
  Company Number: CN-009507513-1509CHN004746

PATIENT
  Age: 84 Year
  Sex: Male

DRUGS (1)
  1. PROSCAR [Suspect]
     Active Substance: FINASTERIDE
     Indication: BENIGN PROSTATIC HYPERPLASIA
     Dosage: 5 MG, UNK
     Route: 048
     Dates: start: 2002, end: 2014

REACTIONS (6)
  - Benign prostatic hyperplasia [Not Recovered/Not Resolved]
  - Exostosis [Not Recovered/Not Resolved]
  - Paralysis [Not Recovered/Not Resolved]
  - Prostatic specific antigen increased [Unknown]
  - Blood pressure increased [Recovered/Resolved]
  - Decreased immune responsiveness [Unknown]

NARRATIVE: CASE EVENT DATE: 2014
